FAERS Safety Report 12378817 (Version 6)
Quarter: 2016Q4

REPORT INFORMATION
  Report Type: Report from Study
  Country: US (occurrence: US)
  Receive Date: 20160517
  Receipt Date: 20161104
  Transmission Date: 20170207
  Serious: Yes (Other)
  Sender: FDA-Public Use
  Company Number: US-PFIZER INC-2016201715

PATIENT
  Age: 58 Year
  Sex: Female

DRUGS (7)
  1. REVATIO [Suspect]
     Active Substance: SILDENAFIL CITRATE
     Dosage: UNK
  2. WARFARIN [Concomitant]
     Active Substance: WARFARIN
  3. AMBRISENTAN [Suspect]
     Active Substance: AMBRISENTAN
     Dosage: 10 MG, DAILY
     Dates: start: 20130715
  4. SINGULAIR [Concomitant]
     Active Substance: MONTELUKAST SODIUM
  5. AMBRISENTAN [Suspect]
     Active Substance: AMBRISENTAN
     Dosage: 10 MG, DAILY
     Dates: start: 20130715
  6. AMBRISENTAN [Suspect]
     Active Substance: AMBRISENTAN
     Dosage: 10 MG, DAILY
     Dates: start: 20130715
  7. COUMADIN [Concomitant]
     Active Substance: WARFARIN SODIUM
     Dosage: UNK

REACTIONS (20)
  - Gait disturbance [Unknown]
  - Productive cough [Not Recovered/Not Resolved]
  - Viral infection [Not Recovered/Not Resolved]
  - Visual acuity reduced [Unknown]
  - Laceration [Unknown]
  - Fall [Unknown]
  - Lip swelling [Not Recovered/Not Resolved]
  - Dizziness [Unknown]
  - Contusion [Unknown]
  - Lymphadenopathy [Not Recovered/Not Resolved]
  - Hypotension [Unknown]
  - Syncope [Unknown]
  - Haemoptysis [Not Recovered/Not Resolved]
  - Injury [Unknown]
  - Oral mucosal blistering [Not Recovered/Not Resolved]
  - Loss of consciousness [Unknown]
  - Sinus congestion [Unknown]
  - Face injury [Unknown]
  - Arthralgia [Unknown]
  - Diplopia [Unknown]

NARRATIVE: CASE EVENT DATE: 20160330
